FAERS Safety Report 19613454 (Version 1)
Quarter: 2021Q3

REPORT INFORMATION
  Report Type: Spontaneous
  Country: US (occurrence: US)
  Receive Date: 20210726
  Receipt Date: 20210726
  Transmission Date: 20211014
  Serious: Yes (Hospitalization)
  Sender: FDA-Public Use
  Company Number: None

PATIENT
  Age: 68 Year
  Sex: Female

DRUGS (24)
  1. CEFDINIR. [Concomitant]
     Active Substance: CEFDINIR
  2. DALIRESP [Concomitant]
     Active Substance: ROFLUMILAST
  3. EZETIMIBE. [Concomitant]
     Active Substance: EZETIMIBE
  4. METOPROL TAR [Concomitant]
  5. SPIRIVA SPR [Concomitant]
  6. XELJANZ [Suspect]
     Active Substance: TOFACITINIB CITRATE
     Indication: RHEUMATOID ARTHRITIS
     Route: 048
     Dates: start: 20200129
  7. ADVAIR HFA [Concomitant]
     Active Substance: FLUTICASONE PROPIONATE\SALMETEROL XINAFOATE
  8. CARTIA [Concomitant]
  9. LEVOFLOXACIN. [Concomitant]
     Active Substance: LEVOFLOXACIN
  10. DOXYCYCL HYC [Concomitant]
     Active Substance: DOXYCYCLINE HYCLATE
  11. FOLIC ACID. [Concomitant]
     Active Substance: FOLIC ACID
  12. FUROSEMIDE. [Concomitant]
     Active Substance: FUROSEMIDE
  13. LEVOTHYROXIN [Concomitant]
     Active Substance: LEVOTHYROXINE
  14. SPIRONOLACT [Concomitant]
     Active Substance: SPIRONOLACTONE
  15. DILTIAZEM. [Concomitant]
     Active Substance: DILTIAZEM
  16. GABAPENTIN. [Concomitant]
     Active Substance: GABAPENTIN
  17. RESTASIS EMU [Concomitant]
  18. SUCRALFATE. [Concomitant]
     Active Substance: SUCRALFATE
  19. HYDROCO [Concomitant]
  20. MONTELUKAST [Concomitant]
     Active Substance: MONTELUKAST SODIUM
  21. ELIQUIS [Concomitant]
     Active Substance: APIXABAN
  22. METHOTREXATE. [Concomitant]
     Active Substance: METHOTREXATE
  23. NYSTATIN. [Concomitant]
     Active Substance: NYSTATIN
  24. PANTOPRAZOLE [Concomitant]
     Active Substance: PANTOPRAZOLE

REACTIONS (3)
  - Fall [None]
  - Intentional dose omission [None]
  - Lower limb fracture [None]

NARRATIVE: CASE EVENT DATE: 20210721
